FAERS Safety Report 7055895-2 (Version None)
Quarter: 2010Q4

REPORT INFORMATION
  Report Type: 
  Country: None (occurrence: None)
  Receive Date: 20101021
  Receipt Date: 20100629
  Transmission Date: 20110411
  Serious: Yes (Other)
  Sender: FDA-Public Use
  Company Number: CHPA2010US10797

PATIENT
  Age: 52 Year
  Sex: Female

DRUGS (1)
  1. THERAFLU VAPOR PATCH (NCH) [Suspect]
     Dosage: UNK DF, QD
     Dates: start: 20100626, end: 20100627

REACTIONS (4)
  - DIZZINESS [None]
  - NAUSEA [None]
  - SYNCOPE [None]
  - VERTIGO [None]
